FAERS Safety Report 17238235 (Version 2)
Quarter: 2020Q1

REPORT INFORMATION
  Report Type: Report from Study
  Country: JP (occurrence: JP)
  Receive Date: 20200106
  Receipt Date: 20200225
  Transmission Date: 20200409
  Serious: Yes (Other)
  Sender: FDA-Public Use
  Company Number: JP-SEATTLE GENETICS-2019SGN05049

PATIENT
  Age: 38 Year
  Sex: Male
  Weight: 50.5 kg

DRUGS (17)
  1. VINBLASTINE SULFATE. [Suspect]
     Active Substance: VINBLASTINE SULFATE
     Indication: HODGKIN^S DISEASE STAGE II
     Dosage: 6 MILLIGRAM/SQ. METER
     Route: 065
     Dates: start: 20190412
  2. NEUTROGIN [Concomitant]
     Active Substance: LENOGRASTIM
     Dosage: UNK
     Route: 065
     Dates: start: 20190521, end: 20190521
  3. G LASTA [Concomitant]
     Active Substance: PEGFILGRASTIM
     Indication: COLONY STIMULATING FACTOR THERAPY
     Dosage: UNK
     Route: 065
     Dates: start: 20190428, end: 20190428
  4. G LASTA [Concomitant]
     Active Substance: PEGFILGRASTIM
     Dosage: UNK
     Route: 065
     Dates: start: 20190711, end: 20190711
  5. ADCETRIS [Suspect]
     Active Substance: BRENTUXIMAB VEDOTIN
     Indication: HODGKIN^S DISEASE STAGE II
     Dosage: 1.2 MG/KG, UNK
     Route: 065
     Dates: start: 20190412
  6. G LASTA [Concomitant]
     Active Substance: PEGFILGRASTIM
     Dosage: UNK
     Route: 065
     Dates: start: 20190530, end: 20190530
  7. G LASTA [Concomitant]
     Active Substance: PEGFILGRASTIM
     Dosage: UNK
     Route: 065
     Dates: start: 20190725, end: 20190725
  8. G LASTA [Concomitant]
     Active Substance: PEGFILGRASTIM
     Dosage: UNK
     Route: 065
     Dates: start: 20190919, end: 20190919
  9. DACARBAZINE. [Suspect]
     Active Substance: DACARBAZINE
     Indication: HODGKIN^S DISEASE STAGE II
     Dosage: 375 MILLIGRAM/SQ. METER
     Route: 065
     Dates: start: 20190412
  10. G LASTA [Concomitant]
     Active Substance: PEGFILGRASTIM
     Dosage: UNK
     Route: 065
     Dates: start: 20190822, end: 20190822
  11. G LASTA [Concomitant]
     Active Substance: PEGFILGRASTIM
     Dosage: UNK
     Route: 065
     Dates: start: 20190905, end: 20190905
  12. DOXORUBICIN HYDROCHLORIDE. [Suspect]
     Active Substance: DOXORUBICIN HYDROCHLORIDE
     Indication: HODGKIN^S DISEASE STAGE II
     Dosage: 25 MILLIGRAM/SQ. METER
     Route: 065
     Dates: start: 20190412
  13. G LASTA [Concomitant]
     Active Substance: PEGFILGRASTIM
     Dosage: UNK
     Route: 065
     Dates: start: 20190627, end: 20190627
  14. G LASTA [Concomitant]
     Active Substance: PEGFILGRASTIM
     Dosage: UNK
     Route: 065
     Dates: start: 20190613, end: 20190613
  15. VICCLOX                            /00587301/ [Concomitant]
     Active Substance: ACYCLOVIR SODIUM
     Indication: INFECTION PROPHYLAXIS
     Dosage: UNK
     Route: 065
     Dates: start: 20190412
  16. G LASTA [Concomitant]
     Active Substance: PEGFILGRASTIM
     Dosage: UNK
     Route: 065
     Dates: start: 20190808, end: 20190808
  17. NEUTROGIN [Concomitant]
     Active Substance: LENOGRASTIM
     Indication: COLONY STIMULATING FACTOR THERAPY
     Dosage: UNK
     Route: 065
     Dates: start: 20190414, end: 20190417

REACTIONS (1)
  - Neutrophil count decreased [Recovered/Resolved]

NARRATIVE: CASE EVENT DATE: 20190521
